FAERS Safety Report 17664470 (Version 1)
Quarter: 2020Q2

REPORT INFORMATION
  Report Type: Other
  Country: US (occurrence: US)
  Receive Date: 20200414
  Receipt Date: 20200414
  Transmission Date: 20200713
  Serious: Yes (Hospitalization, Other)
  Sender: FDA-Public Use
  Company Number: US-NOVA LABORATORIS LIMITED-2082814

PATIENT
  Age: 59 Year
  Sex: Female

DRUGS (2)
  1. PURIXAN [Suspect]
     Active Substance: MERCAPTOPURINE
     Indication: CROHN^S DISEASE
  2. PREDNISONE. [Suspect]
     Active Substance: PREDNISONE

REACTIONS (5)
  - Mixed liver injury [Recovered/Resolved]
  - Hand-foot-and-mouth disease [Recovered/Resolved]
  - Neutropenia [Recovered/Resolved]
  - Off label use [None]
  - Hyperammonaemic encephalopathy [Recovered/Resolved]
